FAERS Safety Report 8533229-1 (Version None)
Quarter: 2012Q3

REPORT INFORMATION
  Report Type: 
  Country: None (occurrence: None)
  Receive Date: 20120724
  Receipt Date: 20120713
  Transmission Date: 20120928
  Serious: Yes (Other)
  Sender: FDA-Public Use
  Company Number: US-VERTEX PHARMACEUTICALS INC.-AE-2011-005119

PATIENT
  Sex: Female

DRUGS (12)
  1. GABAPENTIN [Concomitant]
  2. PEGASYS [Concomitant]
     Indication: HEPATITIS C
     Route: 058
     Dates: start: 20111106
  3. SEROQUEL [Concomitant]
  4. COREG CR [Concomitant]
  5. KLONOPIN [Concomitant]
  6. AMBIEN CR [Concomitant]
  7. INCIVEK [Suspect]
     Indication: HEPATITIS C
     Route: 048
     Dates: start: 20111106
  8. LAMICTAL [Concomitant]
  9. XANAX [Concomitant]
  10. LEVOXYL [Concomitant]
  11. RIBAVIRIN [Concomitant]
     Indication: HEPATITIS C
     Route: 048
     Dates: start: 20111106
  12. PRILOSEC [Concomitant]

REACTIONS (3)
  - PANCYTOPENIA [None]
  - FATIGUE [None]
  - ASTHENIA [None]
